FAERS Safety Report 9611284 (Version 1)
Quarter: 2013Q4

REPORT INFORMATION
  Report Type: Spontaneous
  Country: NL (occurrence: NL)
  Receive Date: 20131010
  Receipt Date: 20131010
  Transmission Date: 20140711
  Serious: Yes (Death)
  Sender: FDA-Public Use
  Company Number: NL-AMGEN-NLDSP2013069618

PATIENT
  Age: 64 Year
  Sex: Female

DRUGS (8)
  1. XGEVA [Suspect]
     Indication: PRODUCT USED FOR UNKNOWN INDICATION
     Dosage: UNK UNK, Q4WK
     Route: 065
     Dates: start: 20130417
  2. ZOMETA [Concomitant]
     Dosage: 4MG/100ML INFVLST
  3. METOCLOPRAMIDE HCL PCH [Concomitant]
     Dosage: 10 MG, UNK
  4. LOPERAMIDE HCL SANDOZ [Concomitant]
     Dosage: 2 MG, UNK
  5. CALCI CHEW D3 [Concomitant]
     Dosage: 500 MG/400IET
  6. FENTANYL MATRIX JC [Concomitant]
     Dosage: 12 MUG, UNK
  7. TAMOXIFEN RP [Concomitant]
     Dosage: 40 MG, UNK
  8. XELODA [Concomitant]
     Dosage: 500 MG, UNK

REACTIONS (1)
  - Death [Fatal]
